FAERS Safety Report 4788758-3 (Version None)
Quarter: 2005Q4

REPORT INFORMATION
  Report Type: 
  Country: None (occurrence: None)
  Receive Date: 20051004
  Receipt Date: 20050915
  Transmission Date: 20060501
  Serious: Yes (Death, Hospitalization)
  Sender: FDA-Public Use
  Company Number: FR_050105659

PATIENT
  Age: 76 Year
  Sex: Male
  Weight: 50 kg

DRUGS (6)
  1. GEMZAR [Suspect]
     Indication: NON-SMALL CELL LUNG CANCER
     Dosage: 1250 MG/M2/2 OTHER
     Dates: start: 20050114, end: 20050114
  2. CARBOPLATIN [Concomitant]
  3. VOGALENE LYOC (METOPIMAZINE) [Concomitant]
  4. PREDNISONE [Concomitant]
  5. CEFPODOXIME PROXETIL [Concomitant]
  6. MUCOMYST (ACETYLCYSTEINE SODIUM) [Concomitant]

REACTIONS (5)
  - BLOOD ALKALINE PHOSPHATASE INCREASED [None]
  - CHOLELITHIASIS [None]
  - HEPATOCELLULAR DAMAGE [None]
  - MALIGNANT NEOPLASM PROGRESSION [None]
  - TRANSAMINASES INCREASED [None]
